FAERS Safety Report 5664826-9 (Version None)
Quarter: 2008Q1

REPORT INFORMATION
  Report Type: 
  Country: None (occurrence: None)
  Receive Date: 20080314
  Receipt Date: 20080304
  Transmission Date: 20080703
  Serious: Yes (Other)
  Sender: FDA-Public Use
  Company Number: US-ABBOTT-08P-163-0438580-00

PATIENT
  Sex: Male
  Weight: 61.29 kg

DRUGS (2)
  1. HUMIRA [Suspect]
     Indication: PSORIATIC ARTHROPATHY
     Route: 058
     Dates: start: 20061201, end: 20070901
  2. HUMIRA [Suspect]
     Route: 058
     Dates: start: 20080110

REACTIONS (7)
  - ACCIDENTAL EXPOSURE [None]
  - ANAEMIA [None]
  - CONTUSION [None]
  - INCORRECT DOSE ADMINISTERED [None]
  - INJECTION SITE PAIN [None]
  - INJECTION SITE REACTION [None]
  - POLYP [None]
